FAERS Safety Report 15790681 (Version 4)
Quarter: 2019Q1

REPORT INFORMATION
  Report Type: Spontaneous
  Country: US (occurrence: US)
  Receive Date: 20190104
  Receipt Date: 20190314
  Transmission Date: 20190417
  Serious: No
  Sender: FDA-Public Use
  Company Number: US-VIFOR (INTERNATIONAL) INC.-VIT-2019-00027

PATIENT
  Age: 67 Year
  Sex: Female

DRUGS (1)
  1. VELTASSA [Suspect]
     Active Substance: PATIROMER
     Indication: HYPERKALAEMIA
     Route: 048
     Dates: start: 20190101

REACTIONS (10)
  - Off label use [Unknown]
  - Vomiting [Not Recovered/Not Resolved]
  - Discomfort [Not Recovered/Not Resolved]
  - Headache [Unknown]
  - Confusional state [Unknown]
  - Ill-defined disorder [Unknown]
  - Adverse drug reaction [Unknown]
  - Delusion [Unknown]
  - Feeling cold [Unknown]
  - Nausea [Unknown]

NARRATIVE: CASE EVENT DATE: 201901
